FAERS Safety Report 5930166-3 (Version None)
Quarter: 2008Q4

REPORT INFORMATION
  Report Type: 
  Country: None (occurrence: None)
  Receive Date: 20081024
  Receipt Date: 20071031
  Transmission Date: 20090506
  Serious: Yes (Death, Hospitalization)
  Sender: FDA-Public Use
  Company Number: US-PFIZER INC-2008086850

PATIENT
  Age: 45 Year
  Sex: Male

DRUGS (3)
  1. NELFINAVIR MESILATE [Suspect]
     Indication: HIV INFECTION
     Route: 048
     Dates: start: 19970801
  2. STAVUDINE [Concomitant]
     Dates: start: 19970801
  3. 3TC [Concomitant]
     Dates: start: 19970801

REACTIONS (3)
  - DEATH [None]
  - ENCEPHALOPATHY [None]
  - LIVER FUNCTION TEST ABNORMAL [None]
